FAERS Safety Report 5933812-3 (Version None)
Quarter: 2008Q4

REPORT INFORMATION
  Report Type: 
  Country: None (occurrence: None)
  Receive Date: 20081024
  Receipt Date: 20081017
  Transmission Date: 20090506
  Serious: Yes (Death, Hospitalization)
  Sender: FDA-Public Use
  Company Number: 2008BI001954

PATIENT
  Age: 67 Year
  Sex: Male

DRUGS (3)
  1. AVONEX [Suspect]
     Indication: MULTIPLE SCLEROSIS
     Dosage: 30 UG;QW;IM
     Route: 030
     Dates: start: 20031029, end: 20080930
  2. . [Concomitant]
  3. . [Concomitant]

REACTIONS (5)
  - BRAIN NEOPLASM MALIGNANT [None]
  - DEEP VEIN THROMBOSIS [None]
  - LUNG CARCINOMA CELL TYPE UNSPECIFIED STAGE IV [None]
  - METASTASES TO KIDNEY [None]
  - METASTASES TO LIVER [None]
